FAERS Safety Report 7258544-3 (Version None)
Quarter: 2011Q1

REPORT INFORMATION
  Report Type: 
  Country: None (occurrence: None)
  Receive Date: 20110129
  Receipt Date: 20100505
  Transmission Date: 20110831
  Serious: No
  Sender: FDA-Public Use
  Company Number: US-ABBOTT-10P-163-0642936-00

PATIENT
  Sex: Female

DRUGS (3)
  1. BONIVA [Concomitant]
     Indication: OSTEOPOROSIS
  2. HUMIRA [Suspect]
     Dates: start: 20100505
  3. HUMIRA [Suspect]
     Indication: RHEUMATOID ARTHRITIS
     Route: 058
     Dates: start: 20080101, end: 20100501

REACTIONS (3)
  - OROPHARYNGEAL PAIN [None]
  - SPUTUM DISCOLOURED [None]
  - BACK PAIN [None]
